FAERS Safety Report 23356039 (Version 3)
Quarter: 2024Q2

REPORT INFORMATION
  Report Type: Report from Study
  Country: IT (occurrence: IT)
  Receive Date: 20240102
  Receipt Date: 20240506
  Transmission Date: 20240716
  Serious: Yes (Hospitalization)
  Sender: FDA-Public Use
  Company Number: None

PATIENT
  Age: 16 Year
  Sex: Female
  Weight: 40 kg

DRUGS (5)
  1. METHOTREXATE [Suspect]
     Active Substance: METHOTREXATE
     Indication: Acute myeloid leukaemia
     Dosage: 12 MG, METOTRESSATO TEVA
     Route: 037
     Dates: start: 20231113
  2. CYTARABINE [Suspect]
     Active Substance: CYTARABINE
     Indication: Acute myeloid leukaemia
     Dosage: 4000 MG FOR SIX DOSES OVER THREE DAYS
     Route: 042
     Dates: start: 20231108, end: 20231110
  3. MITOXANTRONE [Suspect]
     Active Substance: MITOXANTRONE HYDROCHLORIDE
     Indication: Acute myeloid leukaemia
     Dosage: MITOXANTRONE SANDOZ
     Route: 042
     Dates: start: 20231111, end: 20231112
  4. METHYLPREDNISOLONE [Suspect]
     Active Substance: METHYLPREDNISOLONE
     Indication: Acute myeloid leukaemia
     Dosage: 10 MG
     Route: 037
     Dates: start: 20231113
  5. CYTARABINE [Suspect]
     Active Substance: CYTARABINE
     Indication: Product used for unknown indication
     Dosage: 30 MG
     Route: 037
     Dates: start: 20231113

REACTIONS (1)
  - Febrile bone marrow aplasia [Unknown]

NARRATIVE: CASE EVENT DATE: 20231118
